FAERS Safety Report 20562711 (Version 1)
Quarter: 2022Q1

REPORT INFORMATION
  Report Type: Report from Study
  Country: NL (occurrence: NL)
  Receive Date: 20220307
  Receipt Date: 20220307
  Transmission Date: 20220423
  Serious: Yes (Other)
  Sender: FDA-Public Use
  Company Number: NL-NOVARTISPH-NVSC2022NL052245

PATIENT
  Age: 42 Year
  Sex: Female

DRUGS (1)
  1. ILARIS [Suspect]
     Active Substance: CANAKINUMAB
     Indication: Familial mediterranean fever
     Dosage: 1 DOSAGE FORM, Q4W
     Route: 058

REACTIONS (5)
  - Blood pressure increased [Unknown]
  - Headache [Recovering/Resolving]
  - Pain in extremity [Unknown]
  - Haematoma [Unknown]
  - Pain [Recovered/Resolved]

NARRATIVE: CASE EVENT DATE: 20220203
